FAERS Safety Report 10087292 (Version 1)
Quarter: 2014Q2

REPORT INFORMATION
  Report Type: Spontaneous
  Country: US (occurrence: US)
  Receive Date: 20140418
  Receipt Date: 20140418
  Transmission Date: 20141212
  Serious: Yes (Other)
  Sender: FDA-Public Use
  Company Number: US-RB-066069-14

PATIENT
  Age: 0 Year
  Sex: Female

DRUGS (11)
  1. SUBOXONE FILM [Suspect]
     Dosage: SUBOXONE FILM; UNKNMOWN DOSING DETAILS
     Route: 064
     Dates: start: 201003, end: 20101030
  2. SUBOXONE FILM [Suspect]
     Indication: DRUG DEPENDENCE
     Dosage: SUBOXONE FILM; UNKNOWN DOSING DETAILS
     Route: 063
     Dates: start: 20101030, end: 2012
  3. SUBOXONE TABLET [Suspect]
     Indication: PRODUCT USED FOR UNKNOWN INDICATION
     Dosage: UNKNOWN DOSING DETAILS
     Route: 064
     Dates: start: 200904
  4. SUBOXONE TABLET [Suspect]
     Dosage: DOSING DETAILS UNKNOWN
     Route: 063
     Dates: start: 20101030
  5. SUBOXONE TABLET [Suspect]
     Dosage: PATERNAL DOSING DETAILS UNKNOWN
     Route: 064
     Dates: start: 201003
  6. OPIATES [Suspect]
     Indication: PRODUCT USED FOR UNKNOWN INDICATION
     Dosage: UNKNOWN DOSING DETAILS; MOTHER STOPPED DURING PREGNANCY
     Route: 064
     Dates: start: 201003, end: 2010
  7. NICOTINE [Concomitant]
     Dosage: MOTHER SMOKING 10 CIGARETTES A DAY
     Route: 064
     Dates: start: 201003, end: 20101030
  8. NICOTINE [Concomitant]
     Indication: PRODUCT USED FOR UNKNOWN INDICATION
     Dosage: MOTHER SMOKING 10 CIGARETTES A DAY
     Route: 063
     Dates: start: 20101030, end: 2012
  9. PRENATAL VITAMINS [Concomitant]
     Indication: PREGNANCY
     Dosage: MOTHER TAKING 1 DAILY (UNSPECIFIED FORMULATION AND STRENGTH)
     Route: 064
     Dates: start: 201004, end: 201009
  10. IRON SUPPLEMENT [Concomitant]
     Indication: ANAEMIA
     Dosage: MOTHER TAKING 1 DAILY (FORMULATION AND FORM STRENGTH NOT SPECIFIED)
     Route: 064
     Dates: start: 201004, end: 201009
  11. TYLENOL [Concomitant]
     Indication: BACK PAIN
     Dosage: MOTHER TAKING 2 DAILY (UNSPECIFED FORMULATION AND STRENGTH)
     Route: 064
     Dates: start: 201007, end: 201010

REACTIONS (6)
  - Foetal exposure during pregnancy [Recovered/Resolved]
  - Exposure during breast feeding [Recovered/Resolved]
  - Premature baby [Recovered/Resolved]
  - Drug withdrawal syndrome neonatal [Recovered/Resolved]
  - Motor developmental delay [Unknown]
  - Speech disorder developmental [Unknown]
